FAERS Safety Report 7293673-X (Version None)
Quarter: 2011Q1

REPORT INFORMATION
  Report Type: 
  Country: None (occurrence: None)
  Receive Date: 20110215
  Receipt Date: 20110204
  Transmission Date: 20110831
  Serious: Yes (Other)
  Sender: FDA-Public Use
  Company Number: B0696586A

PATIENT
  Age: 15 Year
  Sex: Male
  Weight: 70 kg

DRUGS (2)
  1. CEFTAZIDIME SODIUM [Suspect]
     Indication: INFECTION
     Route: 042
  2. VANCOMYCIN [Concomitant]
     Indication: INFECTION

REACTIONS (15)
  - HAEMOPTYSIS [None]
  - DIARRHOEA [None]
  - HAEMATEMESIS [None]
  - HYPOPROTEINAEMIA [None]
  - PYREXIA [None]
  - STAPHYLOCOCCAL INFECTION [None]
  - HYPOALBUMINAEMIA [None]
  - CLOSTRIDIUM TEST POSITIVE [None]
  - PSEUDOMEMBRANOUS COLITIS [None]
  - UPPER GASTROINTESTINAL HAEMORRHAGE [None]
  - ANAEMIA [None]
  - PULMONARY ALVEOLAR HAEMORRHAGE [None]
  - ABDOMINAL DISTENSION [None]
  - COUGH [None]
  - RENAL IMPAIRMENT [None]
